FAERS Safety Report 7505898-6 (Version None)
Quarter: 2011Q2

REPORT INFORMATION
  Report Type: 
  Country: None (occurrence: None)
  Receive Date: 20110526
  Receipt Date: 20110523
  Transmission Date: 20111010
  Serious: Yes (Hospitalization, Other)
  Sender: FDA-Public Use
  Company Number: US-TEVA-282972USA

PATIENT
  Age: 57 Year
  Sex: Male
  Weight: 73 kg

DRUGS (3)
  1. TACROLIMUS [Suspect]
     Indication: RENAL TRANSPLANT
     Dosage: 6 MILLIGRAM;
  2. PHENOBARBITAL TAB [Suspect]
     Indication: CONVULSION
     Dosage: 129.6 MILLIGRAM;
     Route: 048
  3. CARBAMAZEPINE [Suspect]
     Indication: CONVULSION
     Dosage: 800 MILLIGRAM;
     Route: 048

REACTIONS (2)
  - DRUG INTERACTION [None]
  - TRANSPLANT REJECTION [None]
